FAERS Safety Report 12763133 (Version 1)
Quarter: 2016Q3

REPORT INFORMATION
  Report Type: Spontaneous
  Country: US (occurrence: US)
  Receive Date: 20160915
  Receipt Date: 20160915
  Transmission Date: 20161109
  Serious: No
  Sender: FDA-Public Use
  Company Number: None

PATIENT
  Age: 67 Year
  Sex: Male

DRUGS (1)
  1. VANCOMYCIN 1 GM FRESENIUS KABI USA [Suspect]
     Active Substance: VANCOMYCIN
     Indication: OSTEOMYELITIS
     Route: 042
     Dates: start: 20160617, end: 20160706

REACTIONS (4)
  - Hypoacusis [None]
  - Dizziness [None]
  - Eye pain [None]
  - Nausea [None]

NARRATIVE: CASE EVENT DATE: 20160708
